FAERS Safety Report 12356648 (Version 1)
Quarter: 2016Q2

REPORT INFORMATION
  Report Type: Spontaneous
  Country: US (occurrence: US)
  Receive Date: 20160511
  Receipt Date: 20160511
  Transmission Date: 20160815
  Serious: Yes (Hospitalization, Other)
  Sender: FDA-Public Use
  Company Number: ADR-2015-01295

PATIENT
  Age: 56 Year
  Sex: Female

DRUGS (24)
  1. SINGULAIR [Suspect]
     Active Substance: MONTELUKAST SODIUM
     Route: 065
  2. CRESTOR [Suspect]
     Active Substance: ROSUVASTATIN CALCIUM
     Route: 065
  3. PROTONIX [Suspect]
     Active Substance: PANTOPRAZOLE SODIUM
     Route: 065
  4. VALIUM [Suspect]
     Active Substance: DIAZEPAM
     Route: 065
  5. BACLOFEN. [Suspect]
     Active Substance: BACLOFEN
     Dosage: 99.9 MCG/DAY
     Route: 037
  6. METHADONE [Suspect]
     Active Substance: METHADONE HYDROCHLORIDE
     Dosage: 1.84 MG/DAY
     Route: 037
  7. BUTULBITAL [Suspect]
     Active Substance: BUTALBITAL
     Route: 065
  8. BACLOFEN. [Suspect]
     Active Substance: BACLOFEN
     Route: 037
  9. AMBIEN [Suspect]
     Active Substance: ZOLPIDEM TARTRATE
     Route: 065
  10. ALDACTONE [Suspect]
     Active Substance: SPIRONOLACTONE
     Route: 065
  11. LANTUS [Suspect]
     Active Substance: INSULIN GLARGINE
     Dosage: 45-47 U EVERY DAY
     Route: 065
  12. TOPROL XL [Suspect]
     Active Substance: METOPROLOL SUCCINATE
     Route: 065
  13. VITAMIN D [Suspect]
     Active Substance: CHOLECALCIFEROL
     Route: 065
  14. METHADONE [Suspect]
     Active Substance: METHADONE HYDROCHLORIDE
     Route: 037
  15. DEPO-ESTRADIOL [Suspect]
     Active Substance: ESTRADIOL CYPIONATE
     Dosage: 7.55 MG IM EVERY 2-3 WEEKS
     Route: 030
  16. PHENERGAN [Suspect]
     Active Substance: PROMETHAZINE HYDROCHLORIDE
     Dosage: 5-7.5 MG IV TID PRN
     Route: 042
  17. HUMALOG [Suspect]
     Active Substance: INSULIN LISPRO
     Route: 065
  18. EVOXAC [Suspect]
     Active Substance: CEVIMELINE HYDROCHLORIDE
     Route: 065
  19. SOMA [Suspect]
     Active Substance: CARISOPRODOL
     Route: 065
  20. METHADONE [Suspect]
     Active Substance: METHADONE HYDROCHLORIDE
     Dosage: 0.3497 MG/DAY
     Route: 037
  21. BACLOFEN. [Suspect]
     Active Substance: BACLOFEN
     Dosage: 136.2 MCG/DAY
     Route: 037
  22. METHADONE [Suspect]
     Active Substance: METHADONE HYDROCHLORIDE
     Dosage: 0.4767 MG/DAY
     Route: 037
  23. BACLOFEN. [Suspect]
     Active Substance: BACLOFEN
     Route: 037
  24. CYMBALTA [Suspect]
     Active Substance: DULOXETINE HYDROCHLORIDE
     Route: 065

REACTIONS (4)
  - Impaired healing [Recovered/Resolved]
  - Blood pressure decreased [Unknown]
  - White blood cell count increased [Unknown]
  - Medical device site erosion [Unknown]

NARRATIVE: CASE EVENT DATE: 20091109
